FAERS Safety Report 4515268-0 (Version None)
Quarter: 2004Q4

REPORT INFORMATION
  Report Type: 
  Country: None (occurrence: None)
  Receive Date: 20041130
  Receipt Date: 20041130
  Transmission Date: 20050328
  Serious: Yes (Other)
  Sender: FDA-Public Use
  Company Number: None

PATIENT
  Age: 45 Year
  Sex: Male
  Weight: 110 kg

DRUGS (9)
  1. PEG-INTRON [Suspect]
     Indication: HEPATITIS C
     Dosage: 150 MCG WEEKLY SUBCUTANEOUS
     Route: 058
     Dates: start: 20040526, end: 20041103
  2. RIBAVIRIN [Concomitant]
  3. OMEPRAZOLE [Concomitant]
  4. SIMVASTATIN [Concomitant]
  5. ATENOLOL [Concomitant]
  6. PROZAC [Concomitant]
  7. LORAZEPAM [Concomitant]
  8. QUETIAPINE [Concomitant]
  9. TRIAMTRENE/HCTZ [Concomitant]

REACTIONS (1)
  - RETINAL EXUDATES [None]
